FAERS Safety Report 7080516-2 (Version None)
Quarter: 2010Q4

REPORT INFORMATION
  Report Type: 
  Country: None (occurrence: None)
  Receive Date: 20101103
  Receipt Date: 20101022
  Transmission Date: 20110411
  Serious: Yes (Other)
  Sender: FDA-Public Use
  Company Number: CA-CELGENEUS-028-21880-10100817

PATIENT
  Sex: Male

DRUGS (5)
  1. REVLIMID [Suspect]
     Route: 048
     Dates: start: 20100715
  2. ANTIBIOTICS [Concomitant]
     Route: 051
     Dates: start: 20101021
  3. TOPIRAMATE [Concomitant]
     Route: 048
  4. TOPIRAMATE [Concomitant]
     Route: 048
  5. ZOPICLONE [Concomitant]
     Route: 065

REACTIONS (7)
  - CONSTIPATION [None]
  - CONTUSION [None]
  - HAEMORRHOIDAL HAEMORRHAGE [None]
  - IRRITABILITY [None]
  - PRURITUS [None]
  - RASH PUSTULAR [None]
  - URTICARIA [None]
